FAERS Safety Report 5746793-2 (Version None)
Quarter: 2008Q2

REPORT INFORMATION
  Report Type: 
  Country: None (occurrence: None)
  Receive Date: 20080522
  Receipt Date: 20080512
  Transmission Date: 20081010
  Serious: Yes (Other)
  Sender: FDA-Public Use
  Company Number: US-PFIZER INC-2008041324

PATIENT
  Sex: Male

DRUGS (2)
  1. CHANTIX [Suspect]
  2. CLONAZEPAM [Concomitant]

REACTIONS (6)
  - HOMICIDAL IDEATION [None]
  - MENTAL IMPAIRMENT [None]
  - NIGHTMARE [None]
  - PHYSICAL DISABILITY [None]
  - SUICIDAL IDEATION [None]
  - VIOLENCE-RELATED SYMPTOM [None]
